FAERS Safety Report 7184368-1 (Version None)
Quarter: 2010Q4

REPORT INFORMATION
  Report Type: 
  Country: None (occurrence: None)
  Receive Date: 20101222
  Receipt Date: 20091130
  Transmission Date: 20110411
  Serious: No
  Sender: FDA-Public Use
  Company Number: US-PFIZER INC-2009304886

PATIENT
  Sex: Female
  Weight: 78 kg

DRUGS (1)
  1. FLUCONAZOLE [Suspect]
     Indication: FUNGAL INFECTION
     Dosage: 150 MG, WEEKLY
     Route: 048
     Dates: start: 20091128

REACTIONS (3)
  - DIZZINESS [None]
  - PALPITATIONS [None]
  - VULVOVAGINAL DISCOMFORT [None]
